FAERS Safety Report 4589676-6 (Version None)
Quarter: 2005Q1

REPORT INFORMATION
  Report Type: 
  Country: None (occurrence: None)
  Receive Date: 20050223
  Receipt Date: 20050209
  Transmission Date: 20050727
  Serious: Yes (Hospitalization)
  Sender: FDA-Public Use
  Company Number: FR-ROCHE-395981

PATIENT
  Age: 31 Year
  Sex: Female

DRUGS (5)
  1. RIVOTRIL [Suspect]
     Indication: EPILEPSY
     Route: 065
     Dates: start: 19900615
  2. DIHYDANTOIN [Suspect]
     Indication: EPILEPSY
     Route: 065
     Dates: start: 19900615
  3. TEGRETOL [Suspect]
     Indication: EPILEPSY
     Route: 065
     Dates: start: 19900615
  4. SPECIAFOLDINE [Suspect]
     Indication: DRUG USE FOR UNKNOWN INDICATION
     Route: 065
  5. KEPPRA [Suspect]
     Indication: EPILEPSY
     Route: 065
     Dates: start: 20041220

REACTIONS (4)
  - DRUG EXPOSURE DURING PREGNANCY [None]
  - GRAND MAL CONVULSION [None]
  - PETIT MAL EPILEPSY [None]
  - PREGNANCY [None]
